FAERS Safety Report 25454554 (Version 1)
Quarter: 2025Q2

REPORT INFORMATION
  Report Type: Spontaneous
  Country: CA (occurrence: CA)
  Receive Date: 20250619
  Receipt Date: 20250619
  Transmission Date: 20250716
  Serious: Yes (Other)
  Sender: CSL BEHRING
  Company Number: CA-BEH-2025209085

PATIENT
  Age: 69 Year
  Sex: Male

DRUGS (15)
  1. PRIVIGEN [Suspect]
     Active Substance: HUMAN IMMUNOGLOBULIN G
     Indication: Graft versus host disease in lung
     Route: 065
     Dates: start: 20240718, end: 20240718
  2. PRIVIGEN [Suspect]
     Active Substance: HUMAN IMMUNOGLOBULIN G
     Route: 065
     Dates: start: 20240719, end: 20240912
  3. PRIVIGEN [Suspect]
     Active Substance: HUMAN IMMUNOGLOBULIN G
     Route: 065
     Dates: start: 20240802
  4. PRIVIGEN [Suspect]
     Active Substance: HUMAN IMMUNOGLOBULIN G
     Route: 065
     Dates: start: 20240804
  5. PRIVIGEN [Suspect]
     Active Substance: HUMAN IMMUNOGLOBULIN G
     Route: 065
     Dates: start: 20240805
  6. PRIVIGEN [Suspect]
     Active Substance: HUMAN IMMUNOGLOBULIN G
     Route: 065
     Dates: start: 20240911
  7. PRIVIGEN [Suspect]
     Active Substance: HUMAN IMMUNOGLOBULIN G
     Route: 065
     Dates: start: 20240912
  8. DIMENHYDRINATE [Concomitant]
     Active Substance: DIMENHYDRINATE
  9. LORAZEPAM [Concomitant]
     Active Substance: LORAZEPAM
  10. ACETAMINOPHEN [Concomitant]
     Active Substance: ACETAMINOPHEN
  11. DIPHENHYDRAMINE [Concomitant]
     Active Substance: DIPHENHYDRAMINE
  12. FUROSEMIDE [Concomitant]
     Active Substance: FUROSEMIDE
     Route: 042
  13. FUROSEMIDE [Concomitant]
     Active Substance: FUROSEMIDE
     Route: 042
  14. DAPSONE [Concomitant]
     Active Substance: DAPSONE
  15. AZITHROMYCIN [Concomitant]
     Active Substance: AZITHROMYCIN

REACTIONS (13)
  - Transfusion-associated dyspnoea [Unknown]
  - Hypersensitivity [Unknown]
  - Bronchospasm [Unknown]
  - Dyspnoea [Unknown]
  - Hypoxia [Unknown]
  - Tachycardia [Unknown]
  - Hypertension [Unknown]
  - Hyperhidrosis [Unknown]
  - Hot flush [Unknown]
  - Flushing [Unknown]
  - Pyrexia [Unknown]
  - Suspected product quality issue [Unknown]
  - Off label use [Unknown]

NARRATIVE: CASE EVENT DATE: 20240718
